FAERS Safety Report 7588774-2 (Version None)
Quarter: 2011Q3

REPORT INFORMATION
  Report Type: 
  Country: None (occurrence: None)
  Receive Date: 20110705
  Receipt Date: 20110624
  Transmission Date: 20111222
  Serious: Yes (Other)
  Sender: FDA-Public Use
  Company Number: PL-SANOFI-AVENTIS-2011SA036676

PATIENT
  Age: 48 Year
  Sex: Male
  Weight: 83 kg

DRUGS (2)
  1. METOPROLOL SUCCINATE [Concomitant]
     Route: 048
     Dates: start: 20101015, end: 20110608
  2. MULTAQ [Suspect]
     Route: 048
     Dates: start: 20101115, end: 20110608

REACTIONS (3)
  - HYPERTHYROIDISM [None]
  - ATRIAL FIBRILLATION [None]
  - WEIGHT DECREASED [None]
